FAERS Safety Report 5223516-7 (Version None)
Quarter: 2007Q1

REPORT INFORMATION
  Report Type: 
  Country: None (occurrence: None)
  Receive Date: 20070125
  Receipt Date: 20070117
  Transmission Date: 20070707
  Serious: Yes (Hospitalization)
  Sender: FDA-Public Use
  Company Number: 2007BI001342

PATIENT
  Age: 53 Year
  Sex: Female

DRUGS (2)
  1. AVONEX [Suspect]
     Indication: MULTIPLE SCLEROSIS
     Dosage: IM
     Route: 030
     Dates: start: 20000912, end: 20041109
  2. AVONEX [Suspect]
     Indication: MULTIPLE SCLEROSIS
     Dosage: IM
     Route: 030
     Dates: start: 20050325

REACTIONS (6)
  - ASTHENIA [None]
  - CARDIAC DISORDER [None]
  - CREATINE PHOSPHOKINASE DECREASED [None]
  - DEHYDRATION [None]
  - FALL [None]
  - MOBILITY DECREASED [None]
